FAERS Safety Report 5965770-X (Version None)
Quarter: 2008Q4

REPORT INFORMATION
  Report Type: 
  Country: None (occurrence: None)
  Receive Date: 20081121
  Receipt Date: 20081114
  Transmission Date: 20090506
  Serious: Yes (Hospitalization)
  Sender: FDA-Public Use
  Company Number: 2008SP023243

PATIENT
  Age: 40 Year
  Sex: Male

DRUGS (7)
  1. TEMOZOLOMIDE [Suspect]
     Indication: GLIOBLASTOMA
     Dosage: 1500 MG; QM; IV
     Route: 042
     Dates: start: 20080507, end: 20081019
  2. DOXORUBICIN HCL [Suspect]
     Indication: GLIOBLASTOMA
     Dosage: 80 MG; QM; IV
     Route: 042
     Dates: start: 20080507, end: 20081015
  3. ACETAMINOPHEN [Concomitant]
  4. SALBUTAMOL /00139502/ [Concomitant]
  5. BECLOMETHASONE DIPROPIONATE [Concomitant]
  6. CODEINE SUL TAB [Concomitant]
  7. OTRIVIN /00109601/ [Concomitant]

REACTIONS (6)
  - COUGH [None]
  - FEBRILE NEUTROPENIA [None]
  - HAEMOGLOBIN DECREASED [None]
  - PYREXIA [None]
  - RED BLOOD CELL COUNT DECREASED [None]
  - WHITE BLOOD CELL COUNT DECREASED [None]
